FAERS Safety Report 21754341 (Version 3)
Quarter: 2023Q1

REPORT INFORMATION
  Report Type: Spontaneous
  Country: US (occurrence: US)
  Receive Date: 20221220
  Receipt Date: 20230203
  Transmission Date: 20230417
  Serious: No
  Sender: FDA-Public Use
  Company Number: US-ELI_LILLY_AND_COMPANY-US202212003196

PATIENT
  Sex: Female

DRUGS (4)
  1. MOUNJARO [Suspect]
     Active Substance: TIRZEPATIDE
     Indication: Product used for unknown indication
     Dosage: 2.5 MG, UNKNOWN
     Route: 065
  2. MOUNJARO [Suspect]
     Active Substance: TIRZEPATIDE
     Dosage: 5 UNK
     Route: 065
  3. MOUNJARO [Suspect]
     Active Substance: TIRZEPATIDE
     Indication: Type 2 diabetes mellitus
     Dosage: 10 MG, UNKNOWN
     Route: 058
     Dates: start: 20230114
  4. MOUNJARO [Suspect]
     Active Substance: TIRZEPATIDE
     Dosage: 10 MG, UNKNOWN
     Route: 058
     Dates: start: 20230114

REACTIONS (4)
  - Illness [Unknown]
  - Injection site pain [Unknown]
  - Nausea [Recovering/Resolving]
  - Vomiting [Recovering/Resolving]
